FAERS Safety Report 7536810-1 (Version None)
Quarter: 2011Q2

REPORT INFORMATION
  Report Type: 
  Country: None (occurrence: None)
  Receive Date: 20110609
  Receipt Date: 20110606
  Transmission Date: 20111010
  Serious: Yes (Hospitalization)
  Sender: FDA-Public Use
  Company Number: DE-ROCHE-632259

PATIENT
  Sex: Male
  Weight: 78 kg

DRUGS (10)
  1. BEVACIZUMAB [Suspect]
     Indication: NON-SMALL CELL LUNG CANCER
     Dosage: FORM: INFUSION FREQUENCY: D1LAST DOSE PRIOR TO SAE: 23 APR 2009
     Route: 042
     Dates: start: 20090402
  2. CISPLATIN [Suspect]
     Indication: NON-SMALL CELL LUNG CANCER
     Route: 065
     Dates: start: 20090402
  3. PANTOPRAZOLE [Concomitant]
     Dates: start: 20090902
  4. GEMCITABINE [Suspect]
     Indication: NON-SMALL CELL LUNG CANCER
     Dosage: FEQUENCY:D1,D8 DOSAGE FORM: INFUSION. LAST DOSE PRIOR TO SAE: 30 APRIL 2009
     Route: 042
     Dates: start: 20090402
  5. TAMSULOSIN HCL [Concomitant]
     Dates: start: 20090501
  6. ATMADISC [Concomitant]
     Dosage: DOSE: 4 TDD
     Dates: start: 20090101
  7. AMLODIPINE [Concomitant]
     Dates: start: 20070101
  8. SPIRIVA [Concomitant]
     Dates: start: 20070101
  9. CARBOPLATIN [Suspect]
     Indication: NON-SMALL CELL LUNG CANCER
     Dosage: DOSE: AUC 5 FREQUENCY: D1. INFUSION DOSAGE FORM: INFUSION
     Route: 042
     Dates: start: 20090423
  10. RAMIPRIL [Concomitant]
     Dates: start: 20070101

REACTIONS (1)
  - SYNCOPE [None]
